FAERS Safety Report 4423203-9 (Version None)
Quarter: 2004Q3

REPORT INFORMATION
  Report Type: 
  Country: None (occurrence: None)
  Receive Date: 20040809
  Receipt Date: 20040809
  Transmission Date: 20050211
  Serious: Yes (Disabling)
  Sender: FDA-Public Use
  Company Number: None

PATIENT
  Age: 46 Year
  Sex: Male
  Weight: 72.5755 kg

DRUGS (1)
  1. PEGYLATED INTERFERON ALFA [Suspect]
     Indication: HEPATITIS C
     Dosage: ONCE PER SELF INJEC SUBCUTANEOUS
     Route: 058
     Dates: start: 20020515, end: 20030515

REACTIONS (6)
  - ARTHRALGIA [None]
  - BONE PAIN [None]
  - EYE PAIN [None]
  - LENS DISORDER [None]
  - MYALGIA [None]
  - VISUAL ACUITY REDUCED [None]
